FAERS Safety Report 7213430-X (Version None)
Quarter: 2010Q4

REPORT INFORMATION
  Report Type: 
  Country: None (occurrence: None)
  Receive Date: 20101126
  Receipt Date: 20100804
  Transmission Date: 20110411
  Serious: Yes (Other)
  Sender: FDA-Public Use
  Company Number: WAES 0706USA00452

PATIENT
  Age: 50 Year
  Sex: Female
  Weight: 68.4932 kg

DRUGS (5)
  1. FOSAMAX [Suspect]
     Indication: OSTEOPOROSIS
     Dosage: 70 MG/PO
     Dates: start: 20060113, end: 20060710
  2. ABILIFY [Concomitant]
  3. PAXIL [Concomitant]
  4. XANAX [Concomitant]
  5. TRAZODONE HYDROCHLORIDE [Concomitant]

REACTIONS (19)
  - ALVEOLAR OSTEITIS [None]
  - BONE DENSITY DECREASED [None]
  - BONE FRAGMENTATION [None]
  - BREAST PAIN [None]
  - CHEST PAIN [None]
  - CONTUSION [None]
  - DIZZINESS [None]
  - DRUG HYPERSENSITIVITY [None]
  - EXOSTOSIS [None]
  - FALL [None]
  - INFECTION [None]
  - INSOMNIA [None]
  - MUSCLE STRAIN [None]
  - NECK INJURY [None]
  - ORAL PAIN [None]
  - OSTEONECROSIS OF JAW [None]
  - SKIN LACERATION [None]
  - TOOTH LOSS [None]
  - TOOTHACHE [None]
